FAERS Safety Report 21010641 (Version 1)
Quarter: 2022Q2

REPORT INFORMATION
  Report Type: Report from Study
  Country: US (occurrence: None)
  Receive Date: 20220627
  Receipt Date: 20220627
  Transmission Date: 20220721
  Serious: Yes (Hospitalization)
  Sender: FDA-Public Use
  Company Number: US-Eisai Medical Research-EC-2022-116317

PATIENT
  Age: 59 Year
  Sex: Male
  Weight: 94.8 kg

DRUGS (8)
  1. LENVIMA [Suspect]
     Active Substance: LENVATINIB
     Indication: Hepatocellular carcinoma
     Route: 048
     Dates: start: 20220520
  2. SPIRONOLACTONE [Concomitant]
     Active Substance: SPIRONOLACTONE
  3. ZINC [Concomitant]
     Active Substance: ZINC
     Dosage: 50-220 MG
  4. MAGNESIUM [Concomitant]
     Active Substance: MAGNESIUM
  5. LACTULOSE [Concomitant]
     Active Substance: LACTULOSE
     Dosage: 10G/15ML
  6. FUROSEMIDE [Concomitant]
     Active Substance: FUROSEMIDE
  7. PANTOPRAZOLE SODIUM [Concomitant]
     Active Substance: PANTOPRAZOLE SODIUM
  8. CORTISONE [Concomitant]
     Active Substance: CORTISONE

REACTIONS (3)
  - Ammonia increased [Unknown]
  - Blood pressure increased [Recovering/Resolving]
  - Arthralgia [Not Recovered/Not Resolved]

NARRATIVE: CASE EVENT DATE: 20220501
